FAERS Safety Report 4508017-3 (Version None)
Quarter: 2004Q4

REPORT INFORMATION
  Report Type: 
  Country: None (occurrence: None)
  Receive Date: 20041122
  Receipt Date: 20041122
  Transmission Date: 20050328
  Serious: Yes (Other)
  Sender: FDA-Public Use
  Company Number: None

PATIENT
  Age: 52 Month
  Sex: Male
  Weight: 87 kg

DRUGS (2)
  1. ATAZANAVIR   150MG [Suspect]
     Indication: HIV INFECTION
     Dosage: 300MG  QD ORAL
     Route: 048
     Dates: start: 20040702, end: 20040907
  2. RITONAVIR   100MG [Suspect]
     Indication: HIV INFECTION
     Dosage: 100MG  QD ORAL
     Route: 048
     Dates: start: 20040702, end: 20040907

REACTIONS (1)
  - LIPODYSTROPHY ACQUIRED [None]
